FAERS Safety Report 17756646 (Version 1)
Quarter: 2020Q2

REPORT INFORMATION
  Report Type: Spontaneous
  Country: US (occurrence: US)
  Receive Date: 20200507
  Receipt Date: 20200507
  Transmission Date: 20200714
  Serious: No
  Sender: FDA-Public Use
  Company Number: US-AKRON, INC.-2083587

PATIENT
  Sex: Female

DRUGS (1)
  1. CROMOLYN SODIUM OPHTHALMIC SOLUTION [Suspect]
     Active Substance: CROMOLYN SODIUM

REACTIONS (4)
  - Eye burns [None]
  - Eye swelling [None]
  - Corneal oedema [None]
  - Eye pain [None]
